FAERS Safety Report 9842644 (Version 1)
Quarter: 2014Q1

REPORT INFORMATION
  Report Type: Report from Study
  Country: US (occurrence: US)
  Receive Date: 20140124
  Receipt Date: 20140124
  Transmission Date: 20141002
  Serious: Yes (Death)
  Sender: FDA-Public Use
  Company Number: US-SA-2014SA007737

PATIENT
  Age: 33 Year
  Sex: Female
  Weight: 81.7 kg

DRUGS (68)
  1. FLUDARABINE PHOSPHATE [Suspect]
     Indication: ACUTE LYMPHOCYTIC LEUKAEMIA
     Dosage: 2-6DAYS, WEEK CYCLE, TAKEN TO 5MAY2013 AND ALSO TO 06MAY2013
     Route: 042
     Dates: start: 20130501
  2. CYTARABINE [Suspect]
     Indication: ACUTE LYMPHOCYTIC LEUKAEMIA
     Dosage: REGIMEN: DAYS 1-6; 4 WEEK CYCLE
     Route: 042
     Dates: start: 20130430, end: 20130505
  3. FILGRASTIM [Suspect]
     Indication: NEUTROPENIA
     Route: 058
     Dates: start: 20130506, end: 20130525
  4. ACYCLOVIR [Concomitant]
     Indication: PROPHYLAXIS
     Route: 048
     Dates: start: 20130318
  5. DOCUSATE SODIUM [Concomitant]
     Indication: CONSTIPATION
     Dates: start: 20130318
  6. LEXAPRO [Concomitant]
     Indication: DEPRESSION
     Route: 048
     Dates: start: 20130430
  7. OXYCODONE [Concomitant]
     Indication: PAIN
     Dates: start: 20130524, end: 20130528
  8. SENNA [Concomitant]
     Indication: CONSTIPATION
     Route: 048
     Dates: start: 20130112
  9. GABAPENTIN [Concomitant]
     Indication: NEUROPATHY PERIPHERAL
     Route: 048
     Dates: start: 20130430, end: 20130607
  10. DEXAMETHASONE [Concomitant]
     Indication: PROPHYLAXIS
     Dosage: 02 DROPS EVERY SIX HOURS IN BOTH EYES
     Dates: start: 20130430
  11. DEXAMETHASONE [Concomitant]
     Indication: PREMEDICATION
     Dosage: 02 DROPS EVERY SIX HOURS IN BOTH EYES
     Dates: start: 20130430
  12. DEXAMETHASONE [Concomitant]
     Indication: PROPHYLAXIS
     Route: 042
     Dates: start: 20130603, end: 20130603
  13. DEXAMETHASONE [Concomitant]
     Indication: PREMEDICATION
     Route: 042
     Dates: start: 20130603, end: 20130603
  14. DEXAMETHASONE [Concomitant]
     Indication: PROPHYLAXIS
     Route: 042
     Dates: start: 20130605, end: 20130607
  15. DEXAMETHASONE [Concomitant]
     Indication: PREMEDICATION
     Route: 042
     Dates: start: 20130605, end: 20130607
  16. NORMAL SALINE [Concomitant]
     Indication: INFUSION
     Dosage: 10000 ML CONTINUOUS
     Dates: start: 20130531, end: 20130607
  17. NORMAL SALINE [Concomitant]
     Indication: HYPOTENSION
     Dosage: 10000 ML CONTINUOUS
     Dates: start: 20130531, end: 20130607
  18. HEPARIN [Concomitant]
     Dosage: 30 IU EVERY A.M IV
     Route: 042
     Dates: start: 20130430
  19. LORAZEPAM [Concomitant]
     Indication: ANXIETY
     Dosage: 0.5-1 MG IV EVERY 24 HOURS AS NEEDED FOR ANXIETY
     Route: 042
     Dates: start: 20130515, end: 20130530
  20. ZOFRAN [Concomitant]
     Indication: PREMEDICATION
     Dosage: DEXAMETH/ODANSETRON; DEX- 20 MG, ZOFRAN 8 MG EVERY 24 HOURS
     Route: 042
     Dates: start: 20130430, end: 20130505
  21. DILAUDID [Concomitant]
     Indication: PAIN
     Dosage: 1 MG EVERY 2 HRS AS NEEDED
     Route: 048
     Dates: start: 20130531, end: 20130607
  22. MAGNESIUM OXIDE [Concomitant]
     Indication: SUPPLEMENTATION THERAPY
     Dosage: AS SUPPLEMENT
     Route: 048
     Dates: start: 20130522, end: 20130528
  23. MAGNESIUM OXIDE [Concomitant]
     Indication: MINERAL SUPPLEMENTATION
     Dosage: AS SUPPLEMENT
     Route: 048
     Dates: start: 20130522, end: 20130528
  24. MAGNESIUM OXIDE [Concomitant]
     Indication: SUPPLEMENTATION THERAPY
     Dosage: AS MAGNESIUM SUPPLEMENT
     Route: 048
     Dates: start: 20130603, end: 20130603
  25. MAGNESIUM OXIDE [Concomitant]
     Indication: MINERAL SUPPLEMENTATION
     Dosage: AS MAGNESIUM SUPPLEMENT
     Route: 048
     Dates: start: 20130603, end: 20130603
  26. LORATADINE [Concomitant]
     Indication: BONE PAIN
     Route: 048
     Dates: start: 20130507, end: 20130528
  27. CEFEPIME [Concomitant]
     Indication: PYREXIA
     Route: 042
     Dates: start: 20130605, end: 20130605
  28. VANCOMYCIN [Concomitant]
     Indication: PYREXIA
     Route: 042
     Dates: start: 20130525, end: 20130527
  29. MEROPENEM [Concomitant]
     Indication: LOBAR PNEUMONIA
     Dosage: FEVER
     Route: 042
     Dates: start: 20130531, end: 20130607
  30. MEROPENEM [Concomitant]
     Indication: PYREXIA
     Dosage: FEVER
     Route: 042
     Dates: start: 20130531, end: 20130607
  31. MEROPENEM [Concomitant]
     Indication: LOBAR PNEUMONIA
     Dosage: FOR FEVER
     Route: 042
     Dates: start: 20130531, end: 20130531
  32. MEROPENEM [Concomitant]
     Indication: PYREXIA
     Dosage: FOR FEVER
     Route: 042
     Dates: start: 20130531, end: 20130531
  33. MICAFUNGIN [Concomitant]
     Indication: LOBAR PNEUMONIA
     Route: 042
     Dates: start: 20130519, end: 20130521
  34. VITAMIN D3 [Concomitant]
     Indication: SUPPLEMENTATION THERAPY
     Route: 048
     Dates: start: 20130516, end: 20130607
  35. LASIX [Concomitant]
     Indication: PROPHYLAXIS
     Route: 042
     Dates: start: 20130605, end: 20130605
  36. LASIX [Concomitant]
     Indication: SWELLING
     Route: 042
     Dates: start: 20130605, end: 20130605
  37. LASIX [Concomitant]
     Indication: PROPHYLAXIS
     Route: 042
     Dates: start: 20130604, end: 20130604
  38. LASIX [Concomitant]
     Indication: SWELLING
     Route: 042
     Dates: start: 20130604, end: 20130604
  39. POTASSIUM PHOSPHATE DIBASIC [Concomitant]
     Indication: SUPPLEMENTATION THERAPY
     Route: 048
     Dates: start: 20130521, end: 20130521
  40. IOPAMIDOL [Concomitant]
     Indication: SCAN WITH CONTRAST
     Route: 042
     Dates: start: 20130520, end: 20130520
  41. TYLENOL [Concomitant]
     Indication: PYREXIA
     Dosage: 650 MG ORAL EVERY 06 HOURS AS NEEDED
     Route: 048
     Dates: start: 20130528, end: 20130528
  42. VORICONAZOLE [Concomitant]
     Route: 042
     Dates: start: 20130523, end: 20130527
  43. VORICONAZOLE [Concomitant]
     Route: 048
     Dates: start: 20130601, end: 20130607
  44. SODIUM PHOSPHATE DIBASIC [Concomitant]
     Indication: HYPOPHOSPHATAEMIA
     Route: 042
     Dates: start: 20130522, end: 20130522
  45. LIDOCAINE [Concomitant]
     Indication: LOCAL ANAESTHESIA
     Dosage: 10 ML SINGLE INTRADERMAL FOR BONE MARROW BIOPSY LOCAL ANESTHESIA
     Route: 023
     Dates: start: 20130522, end: 20130522
  46. LIDOCAINE [Concomitant]
     Indication: LOCAL ANAESTHESIA
     Dosage: 1 % SINGLE TOPICALLY
     Route: 061
     Dates: start: 20130603, end: 20130603
  47. LEVOFLOXACIN [Concomitant]
     Route: 048
     Dates: start: 20130525, end: 20130528
  48. LINEZOLID [Concomitant]
     Indication: PYREXIA
     Route: 042
     Dates: start: 20130531, end: 20130607
  49. LEVOSALBUTAMOL HYDROCHLORIDE [Concomitant]
     Indication: PROPHYLAXIS
     Dosage: INHALED EVERY 6 HOURS
     Dates: start: 20130531, end: 20130607
  50. FAMOTIDINE [Concomitant]
     Route: 048
     Dates: start: 20130531, end: 20130607
  51. VALTREX [Concomitant]
     Indication: ANTIVIRAL PROPHYLAXIS
     Route: 048
     Dates: start: 20130601, end: 20130607
  52. IPRATROPIUM BROMIDE [Concomitant]
     Indication: PROPHYLAXIS
     Dates: start: 20130531, end: 20130607
  53. HIDROCORTIZON [Concomitant]
     Indication: PREMEDICATION
     Dosage: 25 MG SINGLE
     Route: 042
     Dates: start: 20130605, end: 20130605
  54. ATIVAN [Concomitant]
     Indication: PREMEDICATION
     Dosage: 1 MG SINGLE IV
     Route: 042
     Dates: start: 20130605, end: 20130605
  55. EMLA [Concomitant]
     Dates: start: 20130605, end: 20130605
  56. MAGNESIUM SULFATE [Concomitant]
     Dosage: 32 MEQ  SINGLE
     Route: 042
     Dates: start: 20130604, end: 20130604
  57. VERSED [Concomitant]
     Dosage: 2.5 MG SINGLE ORAL
     Route: 048
     Dates: start: 20130603, end: 20130603
  58. PHOSPHORUS [Concomitant]
     Dosage: 2 PACKETS SINGLE ORAL
     Route: 048
     Dates: start: 20130603, end: 20130603
  59. SODIUM PHOSPHATE DIBASIC/SODIUM PHOSPHATE MONOBASIC (ANHYDRATE) [Concomitant]
     Indication: CONSTIPATION
     Dosage: 5 ML SINGLE ORAL
     Route: 048
     Dates: start: 20130602, end: 20130602
  60. MORPHINE [Concomitant]
     Indication: PAIN
     Route: 042
     Dates: start: 20130531, end: 20130607
  61. TRAMADOL [Concomitant]
     Indication: PAIN
     Dosage: EVERY 4 HOURS AS NEEDED
     Route: 048
     Dates: start: 20130601, end: 20130607
  62. LACTULOSE [Concomitant]
     Indication: CONSTIPATION
     Dosage: 30 ML ORAL SINGLE
     Route: 048
     Dates: start: 20130601, end: 20130607
  63. OXYCONTIN [Concomitant]
     Indication: PAIN
     Route: 048
     Dates: start: 20130601, end: 20130607
  64. POTASSIUM CHLORIDE [Concomitant]
     Dosage: 40 MEQ SINGLE FOR POTASSIUM REPLACEMENT
     Route: 048
     Dates: start: 20130601, end: 20130607
  65. POTASSIUM CHLORIDE [Concomitant]
     Route: 048
     Dates: start: 20130603, end: 20130603
  66. POTASSIUM CHLORIDE [Concomitant]
     Route: 048
     Dates: start: 20130604, end: 20130604
  67. ALLOPURINOL [Concomitant]
     Route: 048
     Dates: start: 20130531, end: 20130607
  68. VINCRISTINE [Concomitant]
     Indication: CHEMOTHERAPY
     Dosage: 2 MG SINGLE
     Route: 042
     Dates: start: 20130604, end: 20130604

REACTIONS (1)
  - Haemorrhage intracranial [Fatal]
